FAERS Safety Report 10161587 (Version 2)
Quarter: 2015Q1

REPORT INFORMATION
  Report Type: Spontaneous
  Country: BR (occurrence: BR)
  Receive Date: 20140509
  Receipt Date: 20150125
  Transmission Date: 20150720
  Serious: Yes (Other)
  Sender: FDA-Public Use
  Company Number: BR-AMGEN INC.-BRASP2014032892

PATIENT
  Age: 59 Year
  Sex: Female
  Weight: 65 kg

DRUGS (3)
  1. ENBREL [Suspect]
     Active Substance: ETANERCEPT
     Indication: RHEUMATOID ARTHRITIS
     Dosage: 50 MG, ONCE WEEKLY
     Route: 058
     Dates: start: 201304
  2. ENBREL [Suspect]
     Active Substance: ETANERCEPT
     Dosage: UNK
     Route: 065
  3. PURAN [Concomitant]
     Active Substance: LEVOTHYROXINE SODIUM
     Indication: HYPOTHYROIDISM
     Dosage: UNK
     Dates: start: 1995

REACTIONS (9)
  - Asthenia [Unknown]
  - Pain in extremity [Unknown]
  - Urticaria [Unknown]
  - Rash [Unknown]
  - Cerebrovascular accident [Unknown]
  - Fatigue [Unknown]
  - Pain [Unknown]
  - Arteriosclerosis [Unknown]
  - Eye pain [Unknown]

NARRATIVE: CASE EVENT DATE: 201307
